FAERS Safety Report 22221888 (Version 1)
Quarter: 2023Q2

REPORT INFORMATION
  Report Type: Spontaneous
  Country: US (occurrence: US)
  Receive Date: 20230418
  Receipt Date: 20230418
  Transmission Date: 20230722
  Serious: No
  Sender: FDA-Public Use
  Company Number: US-BAUSCH-BL-2023-005654

PATIENT
  Age: 74 Year
  Sex: Female
  Weight: 72.640 kg

DRUGS (1)
  1. JUBLIA [Suspect]
     Active Substance: EFINACONAZOLE
     Indication: Onychomycosis
     Route: 061
     Dates: start: 20230203, end: 20230403

REACTIONS (3)
  - Onychomycosis [Not Recovered/Not Resolved]
  - Condition aggravated [Not Recovered/Not Resolved]
  - Patient dissatisfaction with treatment [Unknown]

NARRATIVE: CASE EVENT DATE: 20230101
